FAERS Safety Report 10051435 (Version 2)
Quarter: 2014Q3

REPORT INFORMATION
  Report Type: Spontaneous
  Country: US (occurrence: US)
  Receive Date: 20140401
  Receipt Date: 20140724
  Transmission Date: 20150326
  Serious: No
  Sender: FDA-Public Use
  Company Number: US-PFIZER INC-2014090011

PATIENT
  Sex: Male

DRUGS (4)
  1. HYDROCODONE BIT/APAP [Suspect]
     Active Substance: ACETAMINOPHEN\HYDROCODONE BITARTRATE
     Indication: PAIN
     Dosage: 5/325MG, 2 TABLET EVERY 6 HOURS AS NEEDED
     Route: 048
     Dates: start: 20140421, end: 20140428
  2. CELEBREX [Suspect]
     Active Substance: CELECOXIB
     Dosage: UNK
  3. MORPHINE SULFATE. [Suspect]
     Active Substance: MORPHINE SULFATE
     Dosage: UNK
  4. HYDROCODONE [Suspect]
     Active Substance: HYDROCODONE
     Dosage: UNK

REACTIONS (6)
  - Drug hypersensitivity [Unknown]
  - Stress [Unknown]
  - Constipation [Unknown]
  - Vomiting [Unknown]
  - Delusion [Unknown]
  - Nausea [Unknown]
